FAERS Safety Report 5756587-X (Version None)
Quarter: 2008Q2

REPORT INFORMATION
  Report Type: 
  Country: None (occurrence: None)
  Receive Date: 20080528
  Receipt Date: 20080512
  Transmission Date: 20081010
  Serious: Yes (Death, Other)
  Sender: FDA-Public Use
  Company Number: 2008AL004710

PATIENT
  Sex: Male

DRUGS (1)
  1. DIGOXIN [Suspect]
     Dosage: 0.25MG, DAILY, PO
     Route: 048

REACTIONS (4)
  - ARRHYTHMIA [None]
  - CARDIAC FAILURE [None]
  - DIZZINESS [None]
  - NAUSEA [None]
